FAERS Safety Report 6893063-5 (Version None)
Quarter: 2010Q3

REPORT INFORMATION
  Report Type: 
  Country: None (occurrence: None)
  Receive Date: 20100731
  Receipt Date: 20090401
  Transmission Date: 20110219
  Serious: No
  Sender: FDA-Public Use
  Company Number: US-PFIZER INC-2009193166

PATIENT
  Sex: Female
  Weight: 74.83 kg

DRUGS (4)
  1. NEURONTIN [Suspect]
     Indication: AFFECTIVE DISORDER
     Dosage: 100MG FIVE TIMES A DAY
     Dates: start: 20081001
  2. KLONOPIN [Concomitant]
  3. LEXAPRO [Concomitant]
  4. CELEXA [Concomitant]
     Dosage: UNK

REACTIONS (1)
  - VISUAL IMPAIRMENT [None]
